FAERS Safety Report 14354674 (Version 1)
Quarter: 2018Q1

REPORT INFORMATION
  Report Type: Spontaneous
  Country: DE (occurrence: DE)
  Receive Date: 20180105
  Receipt Date: 20180105
  Transmission Date: 20180509
  Serious: Yes (Hospitalization)
  Sender: FDA-Public Use
  Company Number: DE-WEST-WARD PHARMACEUTICALS CORP.-DE-H14001-17-05370

PATIENT
  Age: 53 Year
  Sex: Female
  Weight: 46.7 kg

DRUGS (2)
  1. CARBOPLATIN. [Suspect]
     Active Substance: CARBOPLATIN
     Indication: BRONCHIAL CARCINOMA
     Dosage: 5 PER AUC
     Route: 042
     Dates: start: 20170606, end: 20170606
  2. TOPOTECAN [Suspect]
     Active Substance: TOPOTECAN HYDROCHLORIDE
     Indication: BRONCHIAL CARCINOMA
     Route: 042
     Dates: start: 20170906, end: 20170908

REACTIONS (4)
  - Stomatitis [Recovering/Resolving]
  - Infection [Recovering/Resolving]
  - General physical health deterioration [Recovering/Resolving]
  - Pancytopenia [Recovering/Resolving]

NARRATIVE: CASE EVENT DATE: 20170918
